FAERS Safety Report 6644836-5 (Version None)
Quarter: 2010Q1

REPORT INFORMATION
  Report Type: 
  Country: None (occurrence: None)
  Receive Date: 20100322
  Receipt Date: 20100312
  Transmission Date: 20100710
  Serious: Yes (Other)
  Sender: FDA-Public Use
  Company Number: US-PFIZER INC-2010012770

PATIENT
  Sex: Female

DRUGS (3)
  1. CELEBREX [Suspect]
     Dosage: UNK
  2. MOTRIN [Suspect]
     Dosage: UNK
  3. ZOLEDRONIC ACID [Suspect]
     Route: 042

REACTIONS (1)
  - RHEUMATOID ARTHRITIS [None]
